FAERS Safety Report 23587531 (Version 2)
Quarter: 2024Q2

REPORT INFORMATION
  Report Type: Spontaneous
  Country: US (occurrence: US)
  Receive Date: 20240301
  Receipt Date: 20240517
  Transmission Date: 20240717
  Serious: No
  Sender: FDA-Public Use
  Company Number: US-SA-SAC20240226000434

PATIENT
  Age: 78 Year
  Sex: Female

DRUGS (3)
  1. DUPIXENT [Suspect]
     Active Substance: DUPILUMAB
     Indication: Skin fibrosis
     Dosage: 600 MG, 1X
     Route: 058
     Dates: start: 20240122, end: 20240122
  2. DUPIXENT [Suspect]
     Active Substance: DUPILUMAB
     Indication: Scar
     Dosage: 300 MG, QOW
     Route: 058
     Dates: start: 20240207
  3. DUPIXENT [Suspect]
     Active Substance: DUPILUMAB
     Indication: Scar

REACTIONS (3)
  - Product use in unapproved indication [Unknown]
  - Product dispensing error [Unknown]
  - Intercepted product administration error [Unknown]

NARRATIVE: CASE EVENT DATE: 20240101
